FAERS Safety Report 4467092-5 (Version None)
Quarter: 2004Q4

REPORT INFORMATION
  Report Type: 
  Country: None (occurrence: None)
  Receive Date: 20041004
  Receipt Date: 20041004
  Transmission Date: 20050328
  Serious: Yes (Other)
  Sender: FDA-Public Use
  Company Number: None

PATIENT
  Age: 51 Year
  Sex: Male
  Weight: 80.6 kg

DRUGS (1)
  1. PANAFIL , DPT LABORATORIES HEALTHPOINT LTD [Suspect]
     Indication: WOUND
     Dosage: TOPICAL
     Route: 061
     Dates: start: 20040716

REACTIONS (5)
  - HYPOTENSION [None]
  - NAUSEA [None]
  - TACHYCARDIA [None]
  - URTICARIA [None]
  - VOMITING [None]
